FAERS Safety Report 17299930 (Version 1)
Quarter: 2020Q1

REPORT INFORMATION
  Report Type: Spontaneous
  Country: US (occurrence: US)
  Receive Date: 20200122
  Receipt Date: 20200122
  Transmission Date: 20200409
  Serious: No
  Sender: FDA-Public Use
  Company Number: US-ALLERGAN-1927765US

PATIENT
  Sex: Male

DRUGS (3)
  1. RESTASIS [Suspect]
     Active Substance: CYCLOSPORINE
     Indication: CONJUNCTIVITIS
     Dosage: UNK
     Route: 047
     Dates: start: 20190704
  2. DUPIXENT [Concomitant]
     Active Substance: DUPILUMAB
     Indication: ASTHMA
  3. DUPIXENT [Concomitant]
     Active Substance: DUPILUMAB
     Indication: ECZEMA

REACTIONS (1)
  - Off label use [Unknown]
